FAERS Safety Report 13507180 (Version 1)
Quarter: 2017Q2

REPORT INFORMATION
  Report Type: Spontaneous
  Country: US (occurrence: US)
  Receive Date: 20170502
  Receipt Date: 20170502
  Transmission Date: 20170830
  Serious: Yes (Life-Threatening, Hospitalization)
  Sender: FDA-Public Use
  Company Number: None

PATIENT
  Age: 63 Year
  Sex: Female
  Weight: 65.25 kg

DRUGS (4)
  1. LEVOTHYROXINE. [Concomitant]
     Active Substance: LEVOTHYROXINE
  2. LOW DOSE ASPIRIN [Concomitant]
     Active Substance: ASPIRIN
  3. JANTOVEN [Suspect]
     Active Substance: WARFARIN SODIUM
     Indication: ATRIAL FIBRILLATION
     Route: 048
     Dates: start: 20160208, end: 20160210
  4. FLECAINIDE [Concomitant]
     Active Substance: FLECAINIDE

REACTIONS (9)
  - Back pain [None]
  - Chills [None]
  - Arthralgia [None]
  - Palpitations [None]
  - Chest pain [None]
  - Myocardial infarction [None]
  - Weight increased [None]
  - Peripheral swelling [None]
  - Abdominal pain upper [None]

NARRATIVE: CASE EVENT DATE: 20160210
